FAERS Safety Report 17262981 (Version 1)
Quarter: 2020Q1

REPORT INFORMATION
  Report Type: Spontaneous
  Country: US (occurrence: US)
  Receive Date: 20200110
  Receipt Date: 20200110
  Transmission Date: 20200409
  Serious: Yes (Disabling)
  Sender: FDA-Public Use
  Company Number: None

PATIENT
  Age: 63 Year
  Sex: Male
  Weight: 110 kg

DRUGS (7)
  1. GLUCOTROL [Concomitant]
     Active Substance: GLIPIZIDE
  2. APIXABAN [Concomitant]
     Active Substance: APIXABAN
  3. ATORVASTATIN [Concomitant]
     Active Substance: ATORVASTATIN
  4. GLIPIZIDE. [Concomitant]
     Active Substance: GLIPIZIDE
  5. JARDIANCE [Suspect]
     Active Substance: EMPAGLIFLOZIN
  6. CARVEDILOL. [Concomitant]
     Active Substance: CARVEDILOL
  7. FUROSEMIDE. [Concomitant]
     Active Substance: FUROSEMIDE

REACTIONS (2)
  - Fournier^s gangrene [None]
  - Perineal cellulitis [None]

NARRATIVE: CASE EVENT DATE: 20200107
